FAERS Safety Report 4283335-5 (Version None)
Quarter: 2004Q1

REPORT INFORMATION
  Report Type: 
  Country: None (occurrence: None)
  Receive Date: 20040121
  Receipt Date: 20040105
  Transmission Date: 20041129
  Serious: Yes (Hospitalization, Other)
  Sender: FDA-Public Use
  Company Number: 220774

PATIENT
  Age: 66 Year
  Sex: Female
  Weight: 69 kg

DRUGS (9)
  1. NOVOSEVEN [Suspect]
     Indication: LIVER DISORDER
     Dosage: 120 UG/KG X 4 DOSES , INTRAVENOUS
     Route: 042
     Dates: start: 20021005, end: 20021006
  2. CALCIUM CHLORIDE (CALCIUM CHLORIDE DIHYDRATE) [Concomitant]
  3. ISOFLURANE [Concomitant]
  4. FENTANYL [Concomitant]
  5. NORADRENALINE (NOREPINEPHRINE) [Concomitant]
  6. PROSTAGLANDIN E1 (ALPROSTADIL) [Concomitant]
  7. PANCURONIUM [Concomitant]
  8. INSULIN [Concomitant]
  9. WATER (WATER FOR INJECTION) [Concomitant]

REACTIONS (9)
  - BLOOD CALCIUM DECREASED [None]
  - BLOOD CALCIUM INCREASED [None]
  - BLOOD CREATINE PHOSPHOKINASE INCREASED [None]
  - CARDIAC ARREST [None]
  - HAEMOGLOBIN DECREASED [None]
  - PROCEDURAL COMPLICATION [None]
  - SINUS BRADYCARDIA [None]
  - TROPONIN I INCREASED [None]
  - VENTRICULAR FIBRILLATION [None]
